FAERS Safety Report 20715000 (Version 2)
Quarter: 2024Q1

REPORT INFORMATION
  Report Type: Spontaneous
  Country: DE (occurrence: DE)
  Receive Date: 20220415
  Receipt Date: 20240325
  Transmission Date: 20240410
  Serious: Yes (Life-Threatening, Hospitalization, Other)
  Sender: FDA-Public Use
  Company Number: DE-ACRAF SpA-2022-026957

PATIENT
  Age: 41 Year
  Sex: Male

DRUGS (9)
  1. LORAZEPAM [Interacting]
     Active Substance: LORAZEPAM
     Dosage: 3 X 1 MG/D
  2. ESLICARBAZEPINE [Interacting]
     Active Substance: ESLICARBAZEPINE
     Dosage: 1.2 G, DAILY
  3. ESLICARBAZEPINE [Interacting]
     Active Substance: ESLICARBAZEPINE
     Dosage: THEN REDUCED TO 1 X 800 MG/D
  4. CLOBAZAM [Interacting]
     Active Substance: CLOBAZAM
     Dosage: UNK
     Route: 065
  5. CENOBAMATE [Interacting]
     Active Substance: CENOBAMATE
     Indication: Epilepsy
     Dosage: INITIAL DOSE OF 12.5 MG/D, TRADE NAME: ONTOZRY
     Route: 048
     Dates: start: 20210922
  6. CENOBAMATE [Interacting]
     Active Substance: CENOBAMATE
     Dosage: INCREASED TO 250 MG/D
     Route: 048
  7. VALPROATE [Interacting]
     Active Substance: VALPROIC ACID
     Dosage: 2 X 1 G/D
  8. VALPROATE [Interacting]
     Active Substance: VALPROIC ACID
     Dosage: REDUCED TO 2 X 750 MG/D
  9. PERAMPANEL [Concomitant]
     Active Substance: PERAMPANEL
     Dosage: 1 X 8 MG/D

REACTIONS (6)
  - Overdose [Recovered/Resolved]
  - Subdural haematoma [Recovered/Resolved]
  - Fall [Recovered/Resolved]
  - Skull fracture [Recovered/Resolved]
  - Drug interaction [Recovered/Resolved]
  - Ataxia [Recovered/Resolved]

NARRATIVE: CASE EVENT DATE: 20211106
